FAERS Safety Report 5697377-6 (Version None)
Quarter: 2008Q2

REPORT INFORMATION
  Report Type: 
  Country: None (occurrence: None)
  Receive Date: 20080408
  Receipt Date: 20080328
  Transmission Date: 20081010
  Serious: Yes (Hospitalization, Other)
  Sender: FDA-Public Use
  Company Number: FR-JNJFOC-20080103020

PATIENT
  Age: 30 Year
  Sex: Female

DRUGS (7)
  1. REMICADE [Suspect]
     Route: 042
  2. REMICADE [Suspect]
     Route: 042
  3. REMICADE [Suspect]
     Route: 042
  4. REMICADE [Suspect]
     Route: 042
  5. REMICADE [Suspect]
     Indication: CROHN'S DISEASE
     Route: 042
  6. IMUREL [Concomitant]
     Indication: CROHN'S DISEASE
  7. IXPRIM [Concomitant]
     Indication: PAIN
     Route: 048

REACTIONS (5)
  - DERMATITIS ALLERGIC [None]
  - HYPOTENSION [None]
  - INFUSION RELATED REACTION [None]
  - LIVEDO RETICULARIS [None]
  - PYREXIA [None]
